FAERS Safety Report 9742986 (Version 4)
Quarter: 2014Q4

REPORT INFORMATION
  Report Type: Spontaneous
  Country: US (occurrence: US)
  Receive Date: 20131210
  Receipt Date: 20141009
  Transmission Date: 20150529
  Serious: No
  Sender: FDA-Public Use
  Company Number: US-PFIZER INC-2013283968

PATIENT
  Age: 53 Year
  Sex: Female
  Weight: 52.15 kg

DRUGS (1)
  1. LYRICA [Suspect]
     Active Substance: PREGABALIN
     Indication: FIBROMYALGIA
     Dosage: 125 MG, 1X/DAY
     Route: 048
     Dates: start: 201310

REACTIONS (6)
  - Viral infection [Unknown]
  - Influenza [Unknown]
  - Dizziness [Unknown]
  - Somnolence [Unknown]
  - Feeling abnormal [Unknown]
  - Malaise [Unknown]

NARRATIVE: CASE EVENT DATE: 2013
